FAERS Safety Report 14670627 (Version 1)
Quarter: 2018Q1

REPORT INFORMATION
  Report Type: Spontaneous
  Country: US (occurrence: US)
  Receive Date: 20180322
  Receipt Date: 20180322
  Transmission Date: 20180509
  Serious: Yes (Hospitalization, Other)
  Sender: FDA-Public Use
  Company Number: US-AMAG PHARMACEUTICALS, INC.-AMAG201801010

PATIENT

DRUGS (7)
  1. ALBUTEROL. [Concomitant]
     Active Substance: ALBUTEROL
     Indication: ASTHMA
     Route: 065
  2. PROAIR HFA [Concomitant]
     Active Substance: ALBUTEROL SULFATE
     Indication: ASTHMA
     Dosage: 100 MG, UNK
     Route: 065
     Dates: start: 20161207
  3. METRONIDAZOLE. [Concomitant]
     Active Substance: METRONIDAZOLE
     Indication: BACTERIAL VAGINOSIS
     Dosage: 0.75 %, QHS
     Route: 067
  4. LOVENOX [Concomitant]
     Active Substance: ENOXAPARIN SODIUM
     Indication: PULMONARY EMBOLISM
     Dosage: 60 MG, UNK
     Route: 065
     Dates: start: 20171128
  5. MAKENA [Suspect]
     Active Substance: HYDROXYPROGESTERONE CAPROATE
     Indication: HABITUAL ABORTION
  6. ASPIRIN. [Concomitant]
     Active Substance: ASPIRIN
     Indication: PRODUCT USED FOR UNKNOWN INDICATION
     Route: 065
  7. MAKENA [Suspect]
     Active Substance: HYDROXYPROGESTERONE CAPROATE
     Indication: PREMATURE DELIVERY
     Dosage: 250 MG/ML, WEEKLY
     Route: 030
     Dates: start: 20180125, end: 20180222

REACTIONS (4)
  - Preterm premature rupture of membranes [Recovered/Resolved]
  - Retained placenta or membranes [Unknown]
  - Off label use [Recovered/Resolved]
  - Premature delivery [Recovered/Resolved]

NARRATIVE: CASE EVENT DATE: 20180125
